FAERS Safety Report 12716130 (Version 1)
Quarter: 2016Q3

REPORT INFORMATION
  Report Type: Spontaneous
  Country: US (occurrence: US)
  Receive Date: 20160906
  Receipt Date: 20160906
  Transmission Date: 20161109
  Serious: Yes (Hospitalization)
  Sender: FDA-Public Use
  Company Number: US-ASTRAZENECA-2016SE93053

PATIENT
  Sex: Male
  Weight: 85.3 kg

DRUGS (15)
  1. OMEPRAZOLE. [Suspect]
     Active Substance: OMEPRAZOLE
     Indication: GASTROOESOPHAGEAL REFLUX DISEASE
     Route: 048
  2. GLIMEPIRIDE. [Concomitant]
     Active Substance: GLIMEPIRIDE
     Indication: DIABETES MELLITUS
     Route: 048
  3. CARBEDILOL [Concomitant]
     Indication: BLOOD PRESSURE ABNORMAL
     Route: 048
  4. CENTRUM SILVER [Concomitant]
     Active Substance: MINERALS\VITAMINS
     Indication: ILL-DEFINED DISORDER
     Dosage: 1, DAILY
     Route: 048
  5. SINASTERIDE [Concomitant]
     Indication: REPRODUCTIVE TRACT DISORDER
     Route: 048
  6. AMLODIPINE [Concomitant]
     Active Substance: AMLODIPINE BESYLATE
     Indication: BLOOD PRESSURE ABNORMAL
     Dates: start: 20160826
  7. EONEPEZIL [Concomitant]
     Indication: MEMORY IMPAIRMENT
     Route: 048
     Dates: start: 2013
  8. SINVASTATIN [Concomitant]
     Active Substance: SIMVASTATIN
     Indication: BLOOD CHOLESTEROL ABNORMAL
  9. LATANOROST [Concomitant]
     Indication: EYE DISORDER
     Route: 021
     Dates: start: 2013
  10. BRINONIDIND [Concomitant]
     Indication: EYE DISORDER
     Route: 048
     Dates: start: 2013
  11. IPRATROPIUM BROMIDE. [Concomitant]
     Active Substance: IPRATROPIUM BROMIDE
     Indication: ASTHMA
     Dosage: INTERMITTENT
     Route: 048
     Dates: start: 2013
  12. ASPIRIN. [Concomitant]
     Active Substance: ASPIRIN
     Indication: CARDIAC DISORDER
     Route: 048
  13. ONGLYZA [Concomitant]
     Active Substance: SAXAGLIPTIN HYDROCHLORIDE
     Indication: DIABETES MELLITUS
     Dosage: 5.0MG UNKNOWN
     Route: 048
     Dates: start: 20160826
  14. TAMSULOSIN [Concomitant]
     Active Substance: TAMSULOSIN
     Indication: BLADDER DISORDER
     Route: 048
     Dates: start: 20160803
  15. LANTUS [Concomitant]
     Active Substance: INSULIN GLARGINE
     Indication: DIABETES MELLITUS
     Route: 058
     Dates: end: 20160829

REACTIONS (1)
  - Pneumonia [Unknown]
